FAERS Safety Report 19559597 (Version 1)
Quarter: 2021Q3

REPORT INFORMATION
  Report Type: Spontaneous
  Country: CA (occurrence: CA)
  Receive Date: 20210715
  Receipt Date: 20210715
  Transmission Date: 20211014
  Serious: Yes (Other)
  Sender: FDA-Public Use
  Company Number: CA-SAMSUNG BIOEPIS-SB-2021-17042

PATIENT
  Age: 55 Year
  Sex: Female
  Weight: 121 kg

DRUGS (3)
  1. IRON SUCROSE [Concomitant]
     Active Substance: IRON SUCROSE
     Indication: HAEMORRHAGE
     Route: 065
  2. INFLIXIMAB [Suspect]
     Active Substance: INFLIXIMAB
     Indication: CROHN^S DISEASE
     Route: 042
  3. SYNTHROID [Concomitant]
     Active Substance: LEVOTHYROXINE SODIUM
     Indication: PRODUCT USED FOR UNKNOWN INDICATION
     Dosage: UNKNOWN
     Route: 065

REACTIONS (11)
  - Diarrhoea [Unknown]
  - Off label use [Unknown]
  - Stress [Unknown]
  - Abdominal pain lower [Unknown]
  - Anxiety [Unknown]
  - Hypertrophic cardiomyopathy [Unknown]
  - Fistula [Unknown]
  - Blood thyroid stimulating hormone decreased [Unknown]
  - Dyspnoea [Unknown]
  - Malaise [Unknown]
  - Condition aggravated [Unknown]
